FAERS Safety Report 6473221-4 (Version None)
Quarter: 2009Q4

REPORT INFORMATION
  Report Type: 
  Country: None (occurrence: None)
  Receive Date: 20091204
  Receipt Date: 20090526
  Transmission Date: 20100525
  Serious: Yes (Other)
  Sender: FDA-Public Use
  Company Number: FR-ELI_LILLY_AND_COMPANY-FR200809001935

PATIENT
  Sex: Male

DRUGS (1)
  1. BYETTA [Suspect]
     Dosage: UNK, UNKNOWN
     Route: 058

REACTIONS (3)
  - ANTIVIRAL DRUG LEVEL BELOW THERAPEUTIC [None]
  - HYPERGLYCAEMIA [None]
  - VIRAL LOAD INCREASED [None]
